FAERS Safety Report 9899315 (Version 1)
Quarter: 2014Q1

REPORT INFORMATION
  Report Type: Spontaneous
  Country: US (occurrence: US)
  Receive Date: 20140214
  Receipt Date: 20140214
  Transmission Date: 20141002
  Serious: Yes (Other)
  Sender: FDA-Public Use
  Company Number: US-PFIZER INC-2014042535

PATIENT
  Sex: Female

DRUGS (3)
  1. GABAPENTIN [Suspect]
     Dosage: UNK
  2. GABAPENTIN [Suspect]
     Dosage: UNK (INCREASED)
  3. GABAPENTIN [Suspect]
     Dosage: UNK (DECREASED)

REACTIONS (3)
  - Panic attack [Unknown]
  - Abnormal behaviour [Unknown]
  - Hallucination [Unknown]
